FAERS Safety Report 9050658 (Version 1)
Quarter: 2013Q1

REPORT INFORMATION
  Report Type: Spontaneous
  Country: CH (occurrence: CH)
  Receive Date: 20130205
  Receipt Date: 20130205
  Transmission Date: 20140127
  Serious: Yes (Hospitalization, Other)
  Sender: FDA-Public Use
  Company Number: CH-009507513-1302CHE000315

PATIENT
  Age: 48 Year
  Sex: Female

DRUGS (12)
  1. REMERON SOLTAB [Suspect]
     Dosage: 5 DF, ONCE. 75 MG
     Route: 048
     Dates: start: 20121120, end: 20121120
  2. VENLAFAXINE HYDROCHLORIDE [Suspect]
     Dosage: 10 DF, ONCE. 1.5 G
     Route: 048
     Dates: start: 20121120, end: 20121120
  3. ACETAMINOPHEN (+) TRAMADOL HYDROCHLORIDE [Suspect]
     Dosage: 5-20 DF, ONCE
     Route: 048
     Dates: start: 20121120, end: 20121120
  4. VALPROATE SODIUM [Suspect]
     Dosage: 10 DF, ONCE. 3G
     Route: 048
     Dates: start: 20121120, end: 20121120
  5. AMISULPRIDE [Suspect]
     Dosage: 1.5 G, UNK
     Route: 048
     Dates: start: 20121120, end: 20121120
  6. ESOMEPRAZOLE [Suspect]
     Dosage: 200 MG, UNK
     Route: 048
     Dates: start: 20121120, end: 20121120
  7. DICLOFENAC SODIUM (+) MISOPROSTOL [Suspect]
     Dosage: 200 MG, UNK
     Route: 048
     Dates: start: 20121120, end: 20121120
  8. ATORVASTATIN [Suspect]
     Dosage: UNK
     Route: 048
     Dates: start: 20121120, end: 20121120
  9. VALERIAN [Suspect]
     Dosage: UNK
     Route: 048
     Dates: start: 20121120, end: 20121120
  10. LORAZEPAM [Suspect]
     Dosage: UNK
     Route: 048
     Dates: start: 20121120, end: 20121120
  11. MAGNESIUM [Suspect]
     Dosage: UNK
     Route: 048
     Dates: start: 20121120, end: 20121120
  12. ROSUVASTATIN CALCIUM [Suspect]
     Dosage: UNK
     Route: 048
     Dates: start: 20121120, end: 20121120

REACTIONS (4)
  - Electrocardiogram QT prolonged [Recovered/Resolved]
  - Suicide attempt [Recovered/Resolved]
  - Convulsion [Recovered/Resolved]
  - Intentional overdose [Unknown]
